FAERS Safety Report 5684008-4 (Version None)
Quarter: 2008Q1

REPORT INFORMATION
  Report Type: 
  Country: None (occurrence: None)
  Receive Date: 20080328
  Receipt Date: 20080319
  Transmission Date: 20080703
  Serious: Yes (Hospitalization)
  Sender: FDA-Public Use
  Company Number: DE-JNJFOC-20080304516

PATIENT
  Age: 53 Year
  Sex: Female

DRUGS (1)
  1. TAVANIC [Suspect]
     Indication: PNEUMONIA
     Route: 048
     Dates: start: 20080212, end: 20080213

REACTIONS (3)
  - HALLUCINATION [None]
  - MIGRAINE [None]
  - PSYCHOTIC DISORDER [None]
